FAERS Safety Report 6534025-7 (Version None)
Quarter: 2010Q1

REPORT INFORMATION
  Report Type: 
  Country: None (occurrence: None)
  Receive Date: 20100112
  Receipt Date: 20100105
  Transmission Date: 20100710
  Serious: Yes (Death, Hospitalization)
  Sender: FDA-Public Use
  Company Number: NO-JNJFOC-20091106382

PATIENT
  Sex: Male

DRUGS (3)
  1. REMICADE [Suspect]
     Indication: ANKYLOSING SPONDYLITIS
     Route: 042
     Dates: end: 20080801
  2. PARALGIN FORTE [Suspect]
     Indication: ANKYLOSING SPONDYLITIS
     Dosage: ^UP TO 6 TABLETS A DAY^
     Route: 048
  3. METHOTREXATE [Suspect]
     Indication: ANKYLOSING SPONDYLITIS
     Route: 048

REACTIONS (6)
  - ACUTE HEPATIC FAILURE [None]
  - BRONCHOPNEUMONIA [None]
  - HEPATIC STEATOSIS [None]
  - METASTASES TO PERITONEUM [None]
  - SMALL INTESTINE CARCINOMA [None]
  - SUBILEUS [None]
